FAERS Safety Report 23535369 (Version 1)
Quarter: 2024Q1

REPORT INFORMATION
  Report Type: Spontaneous
  Country: GR (occurrence: None)
  Receive Date: 20240218
  Receipt Date: 20240218
  Transmission Date: 20240410
  Serious: Yes (Life-Threatening, Other)
  Sender: FDA-Public Use
  Company Number: 2024A039350

PATIENT
  Age: 72 Year
  Sex: Female
  Weight: 86 kg

DRUGS (4)
  1. ROSUVASTATIN [Suspect]
     Active Substance: ROSUVASTATIN
     Dosage: 5 MILLIGRAM, 1/DAY
  2. EZETIMIBE\SIMVASTATIN [Suspect]
     Active Substance: EZETIMIBE\SIMVASTATIN
     Dosage: 1 DOSAGE FORM, 1/DAY
     Route: 048
  3. PITAVASTATIN [Suspect]
     Active Substance: PITAVASTATIN
     Dosage: 1 DOSAGE FORM, 1/DAY
  4. ATORVASTATIN [Suspect]
     Active Substance: ATORVASTATIN
     Dosage: 1 DOSAGE FORM, 1/DAY

REACTIONS (3)
  - Drug intolerance [Unknown]
  - Rhabdomyolysis [Unknown]
  - Myalgia [Unknown]

NARRATIVE: CASE EVENT DATE: 20190128
